FAERS Safety Report 6765599-9 (Version None)
Quarter: 2010Q2

REPORT INFORMATION
  Report Type: 
  Country: None (occurrence: None)
  Receive Date: 20100611
  Receipt Date: 20100531
  Transmission Date: 20101027
  Serious: Yes (Other)
  Sender: FDA-Public Use
  Company Number: DE-PFIZER INC-2010059708

PATIENT
  Age: 72 Year
  Sex: Male

DRUGS (8)
  1. LYRICA [Suspect]
     Indication: DRUG WITHDRAWAL CONVULSIONS
     Dosage: 600 MG/DAY
     Route: 048
     Dates: start: 20100101
  2. LYRICA [Suspect]
     Indication: ANXIETY DISORDER
     Dosage: 200 MG
     Route: 048
     Dates: start: 20100101, end: 20100101
  3. ATACAND HCT [Concomitant]
     Dosage: 16 MG/12.5 MG
     Route: 048
     Dates: start: 20100101
  4. METOPROLOL SUCCINATE [Concomitant]
     Dosage: UNK
     Route: 048
     Dates: start: 20100101
  5. CLONIDINE [Concomitant]
     Dosage: 150 OR 75MG
  6. FRISIUM [Concomitant]
     Dosage: 5-10 MG
  7. NEXIUM [Concomitant]
     Dosage: 20
  8. NITROGLYCERIN [Concomitant]
     Dosage: UNK; AS NEEDED

REACTIONS (6)
  - AMNESIA [None]
  - ANXIETY [None]
  - DRUG DEPENDENCE [None]
  - HYPERTENSIVE CRISIS [None]
  - INSOMNIA [None]
  - RESTLESSNESS [None]
